FAERS Safety Report 8788692 (Version 3)
Quarter: 2013Q1

REPORT INFORMATION
  Report Type: Report from Study
  Country: US (occurrence: US)
  Receive Date: 20120915
  Receipt Date: 20130315
  Transmission Date: 20140127
  Serious: Yes (Life-Threatening)
  Sender: FDA-Public Use
  Company Number: US-ABBOTT-12P-163-0979664-00

PATIENT
  Age: 54 Year
  Sex: Male
  Weight: 99.88 kg

DRUGS (13)
  1. HUMIRA [Suspect]
     Indication: PSORIASIS
     Route: 058
     Dates: start: 200906
  2. HUMIRA [Suspect]
     Route: 058
     Dates: start: 20091009, end: 20120908
  3. PROZAC [Concomitant]
     Indication: ANXIETY
     Dates: start: 1999
  4. XANAX [Concomitant]
     Indication: ANXIETY
     Dates: start: 1993
  5. LISINOPRIL [Concomitant]
     Indication: HYPERTENSION
     Dates: start: 1999
  6. VYTORIN [Concomitant]
     Indication: HYPERCHOLESTEROLAEMIA
     Dosage: 10/40 MG
     Dates: start: 2006
  7. MULTIVITAMINS [Concomitant]
     Indication: VITAMIN SUPPLEMENTATION
     Dates: start: 1999
  8. CIALIS [Concomitant]
     Indication: ERECTILE DYSFUNCTION
     Dates: start: 2008
  9. BENAZEPRIL [Concomitant]
     Indication: HYPERTENSION
     Dates: start: 201102
  10. FENOFIBRATE [Concomitant]
     Indication: HYPERCHOLESTEROLAEMIA
     Dates: start: 201102
  11. SIMVASTATIN [Concomitant]
     Indication: HYPERCHOLESTEROLAEMIA
     Dates: start: 201102
  12. ANDRODERM [Concomitant]
     Indication: BLOOD TESTOSTERONE
     Dosage: 1 PATCH
     Dates: start: 201105
  13. SILDENAFIL [Concomitant]
     Indication: ERECTILE DYSFUNCTION
     Dates: start: 201112

REACTIONS (1)
  - Non-Hodgkin^s lymphoma [Not Recovered/Not Resolved]
